FAERS Safety Report 11403376 (Version 1)
Quarter: 2015Q3

REPORT INFORMATION
  Report Type: Spontaneous
  Country: US (occurrence: US)
  Receive Date: 20150821
  Receipt Date: 20150821
  Transmission Date: 20151125
  Serious: No
  Sender: FDA-Public Use
  Company Number: US-TEVA-582348USA

PATIENT
  Sex: Female

DRUGS (1)
  1. APRI [Suspect]
     Active Substance: DESOGESTREL\ETHINYL ESTRADIOL
     Dosage: 0.15 MG / 0.02 MG / 0.01 MG
     Route: 065
     Dates: start: 2010

REACTIONS (2)
  - Dizziness [Unknown]
  - Headache [Unknown]
